FAERS Safety Report 6307002-9 (Version None)
Quarter: 2009Q3

REPORT INFORMATION
  Report Type: 
  Country: None (occurrence: None)
  Receive Date: 20090812
  Receipt Date: 20090729
  Transmission Date: 20100115
  Serious: Yes (Life-Threatening)
  Sender: FDA-Public Use
  Company Number: GB-MYLANLABS-2009S1013507

PATIENT
  Age: 30 Year
  Sex: Male

DRUGS (3)
  1. VENLAFAXINE HYDROCHLORIDE [Suspect]
     Indication: DEPRESSION
     Route: 048
     Dates: start: 20090701, end: 20090704
  2. IBUPROFEN [Concomitant]
     Indication: PAIN
     Route: 048
     Dates: end: 20090704
  3. VALPROATE SODIUM [Concomitant]
     Indication: CONVULSION PROPHYLAXIS
     Route: 048

REACTIONS (2)
  - ANGIOEDEMA [None]
  - HYPERSENSITIVITY [None]
